FAERS Safety Report 8318671-6 (Version None)
Quarter: 2012Q2

REPORT INFORMATION
  Report Type: 
  Country: None (occurrence: None)
  Receive Date: 20120426
  Receipt Date: 20120426
  Transmission Date: 20120825
  Serious: Yes (Hospitalization)
  Sender: FDA-Public Use
  Company Number: None

PATIENT
  Age: 81 Year
  Sex: Male
  Weight: 89 kg

DRUGS (3)
  1. ZYTIGA [Suspect]
     Indication: PROSTATE CANCER
     Dosage: ZYTIGA 1000MG DAILY 047 = PO
     Route: 048
     Dates: start: 20110629, end: 20110810
  2. ZYTIGA [Suspect]
     Indication: PROSTATE CANCER
     Dosage: ZYTIGA 1000MG DAILY 047 = PO
     Route: 048
     Dates: start: 20110818
  3. PREDNISONE TAB [Suspect]
     Indication: BONE NEOPLASM MALIGNANT
     Dosage: PREDNISONE 5MG BID 047 = PO
     Route: 048
     Dates: start: 20110629, end: 20110810

REACTIONS (1)
  - HYPERGLYCAEMIC HYPEROSMOLAR NONKETOTIC SYNDROME [None]
